FAERS Safety Report 9168038 (Version 2)
Quarter: 2013Q1

REPORT INFORMATION
  Report Type: Spontaneous
  Country: US (occurrence: None)
  Receive Date: 20130227
  Receipt Date: 20130312
  Transmission Date: 20140127
  Serious: Yes (Other)
  Sender: FDA-Public Use
  Company Number: 2013034867

PATIENT
  Age: 45 Year
  Sex: Female

DRUGS (7)
  1. INTRAVENOUS IMMUNOGLOBULIN [Suspect]
  2. AZATHIOPRINE [Suspect]
  3. RITUXIMAB (RITUXIMAB) [Suspect]
  4. CYCLOSPORINE (CICLOSPORIN) [Suspect]
  5. METHOTREXATE (METHOTREXATE) [Suspect]
  6. PREDNISONE (PREDNISONE) [Suspect]
  7. HP ACTHAR (CORTICOTROPIN) [Suspect]

REACTIONS (9)
  - Muscular weakness [None]
  - Rash [None]
  - Nail disorder [None]
  - Drug ineffective for unapproved indication [None]
  - Headache [None]
  - Chills [None]
  - Nausea [None]
  - Dermatomyositis [None]
  - Condition aggravated [None]
